FAERS Safety Report 23195789 (Version 1)
Quarter: 2023Q4

REPORT INFORMATION
  Report Type: Spontaneous
  Country: AU (occurrence: AU)
  Receive Date: 20231117
  Receipt Date: 20231117
  Transmission Date: 20240109
  Serious: Yes (Other)
  Sender: FDA-Public Use
  Company Number: AU-BAXTER-2023BAX035852

PATIENT
  Sex: Female

DRUGS (9)
  1. DOXORUBICIN [Suspect]
     Active Substance: DOXORUBICIN
     Indication: Diffuse large B-cell lymphoma
     Dosage: UNK, 6 CYCLES, AS A PART OF RCHOP REGIMEN
     Route: 065
  2. CYCLOPHOSPHAMIDE [Suspect]
     Active Substance: CYCLOPHOSPHAMIDE
     Indication: Diffuse large B-cell lymphoma
     Dosage: UNK, 6 CYCLES, AS A PART OF RCHOP REGIMEN
     Route: 065
  3. RITUXIMAB [Suspect]
     Active Substance: RITUXIMAB
     Indication: Diffuse large B-cell lymphoma
     Dosage: UNK, 6 CYCLES, AS A PART OF RCHOP REGIMEN
     Route: 065
  4. RITUXIMAB [Suspect]
     Active Substance: RITUXIMAB
     Dosage: UNK, AS PART OF RMATRIX REGIMEN
     Route: 065
  5. VINCRISTINE [Suspect]
     Active Substance: VINCRISTINE
     Indication: Diffuse large B-cell lymphoma
     Dosage: UNK, 6 CYCLES, AS A PART OF RCHOP REGIMEN
     Route: 065
  6. PREDNISONE [Suspect]
     Active Substance: PREDNISONE
     Indication: Diffuse large B-cell lymphoma
     Dosage: UNK, 6 CYCLES, AS A PART OF RCHOP REGIMEN
     Route: 065
  7. METHOTREXATE [Suspect]
     Active Substance: METHOTREXATE
     Indication: Diffuse large B-cell lymphoma refractory
     Dosage: UNK, AS PART OF AS PART OF RMATRIX REGIMEN
     Route: 065
  8. CYTARABINE [Suspect]
     Active Substance: CYTARABINE
     Indication: Diffuse large B-cell lymphoma refractory
     Dosage: UNK, AS PART OF RMATRIX REGIMEN
     Route: 065
  9. THIOTEPA [Suspect]
     Active Substance: THIOTEPA
     Indication: Diffuse large B-cell lymphoma refractory
     Dosage: UNK, AS PART OF RMATRIX REGIMEN
     Route: 065

REACTIONS (4)
  - Diffuse large B-cell lymphoma refractory [Unknown]
  - Central nervous system lymphoma [Unknown]
  - Drug tolerance decreased [Unknown]
  - Underweight [Unknown]
